FAERS Safety Report 4789603-2 (Version None)
Quarter: 2005Q4

REPORT INFORMATION
  Report Type: 
  Country: None (occurrence: None)
  Receive Date: 20051004
  Receipt Date: 20050919
  Transmission Date: 20060501
  Serious: Yes (Hospitalization)
  Sender: FDA-Public Use
  Company Number: 2005BI017640

PATIENT
  Age: 45 Year
  Sex: Female
  Weight: 77.1115 kg

DRUGS (3)
  1. AVONEX [Suspect]
     Indication: MULTIPLE SCLEROSIS
     Dosage: 30 UG; QW; IM
     Route: 030
     Dates: start: 19990101, end: 20030801
  2. AVONEX [Suspect]
     Indication: MULTIPLE SCLEROSIS
     Dosage: 30 UG; QW; IM
     Route: 030
     Dates: start: 20030801
  3. PROZAC [Concomitant]

REACTIONS (11)
  - COLLAPSE OF LUNG [None]
  - DECREASED ACTIVITY [None]
  - DEHYDRATION [None]
  - DIFFICULTY IN WALKING [None]
  - INFLUENZA LIKE ILLNESS [None]
  - LUNG NEOPLASM MALIGNANT [None]
  - MENOPAUSE [None]
  - METASTASES TO BONE [None]
  - METASTASES TO NECK [None]
  - THROMBOSIS [None]
  - URINARY INCONTINENCE [None]
